FAERS Safety Report 9400864 (Version 2)
Quarter: 2013Q4

REPORT INFORMATION
  Report Type: Spontaneous
  Country: US (occurrence: US)
  Receive Date: 20130715
  Receipt Date: 20131223
  Transmission Date: 20140711
  Serious: Yes (Other)
  Sender: FDA-Public Use
  Company Number: US-GLAXOSMITHKLINE-A1032990A

PATIENT
  Age: 69 Day
  Sex: Female

DRUGS (1)
  1. AVANDIA [Suspect]
     Indication: DIABETES MELLITUS
     Dosage: 4MG FOUR TIMES PER DAY
     Route: 048
     Dates: start: 199802, end: 20051021

REACTIONS (9)
  - Cerebrovascular accident [Unknown]
  - Aneurysm [Unknown]
  - Chest pain [Unknown]
  - Dyspnoea [Unknown]
  - Fatigue [Unknown]
  - Anxiety [Unknown]
  - Obesity [Unknown]
  - Insomnia [Unknown]
  - Depression [Unknown]
